FAERS Safety Report 25353111 (Version 2)
Quarter: 2025Q3

REPORT INFORMATION
  Report Type: Spontaneous
  Country: US (occurrence: US)
  Receive Date: 20250523
  Receipt Date: 20250805
  Transmission Date: 20251020
  Serious: No
  Sender: PFIZER
  Company Number: US-PFIZER INC-PV202500060418

PATIENT
  Age: 47 Year
  Sex: Female

DRUGS (10)
  1. DOCETAXEL [Suspect]
     Active Substance: DOCETAXEL
     Indication: Breast cancer female
     Dates: start: 20230215
  2. DOCETAXEL [Suspect]
     Active Substance: DOCETAXEL
     Dates: start: 202303
  3. DOCETAXEL [Suspect]
     Active Substance: DOCETAXEL
     Dates: start: 202303
  4. DOCETAXEL [Suspect]
     Active Substance: DOCETAXEL
     Dates: start: 202304
  5. DOCETAXEL [Suspect]
     Active Substance: DOCETAXEL
     Dates: start: 202305
  6. DOCETAXEL [Suspect]
     Active Substance: DOCETAXEL
     Dates: start: 20230530
  7. HERCEPTIN [Concomitant]
     Active Substance: TRASTUZUMAB
     Indication: Chemotherapy
  8. CARBOPLATIN [Concomitant]
     Active Substance: CARBOPLATIN
     Indication: Chemotherapy
  9. TRASTUZUMAB [Concomitant]
     Active Substance: TRASTUZUMAB
     Indication: Chemotherapy
  10. PERTUZUMAB [Concomitant]
     Active Substance: PERTUZUMAB
     Indication: Chemotherapy

REACTIONS (5)
  - Lacrimal structure injury [Not Recovered/Not Resolved]
  - Dry eye [Not Recovered/Not Resolved]
  - Depression [Unknown]
  - Anxiety [Unknown]
  - Lacrimation increased [Not Recovered/Not Resolved]

NARRATIVE: CASE EVENT DATE: 20230201
